FAERS Safety Report 17358837 (Version 1)
Quarter: 2020Q1

REPORT INFORMATION
  Report Type: Spontaneous
  Country: US (occurrence: US)
  Receive Date: 20200202
  Receipt Date: 20200202
  Transmission Date: 20200409
  Serious: Yes (Death)
  Sender: FDA-Public Use
  Company Number: US-GLENMARK PHARMACEUTICALS-2020GMK045811

PATIENT
  Age: 78 Year
  Sex: Male

DRUGS (1)
  1. LIDOCAINE. [Suspect]
     Active Substance: LIDOCAINE
     Indication: HYPOGLYCAEMIA
     Dosage: UNK
     Route: 051

REACTIONS (4)
  - Wrong product administered [Fatal]
  - Shock [Fatal]
  - Cardiac tamponade [Fatal]
  - Cardiac arrest [Fatal]
